FAERS Safety Report 25064850 (Version 1)
Quarter: 2025Q1

REPORT INFORMATION
  Report Type: Spontaneous
  Country: FR (occurrence: FR)
  Receive Date: 20250311
  Receipt Date: 20250311
  Transmission Date: 20250409
  Serious: Yes (Hospitalization)
  Sender: PFIZER
  Company Number: None

PATIENT
  Age: 15 Year
  Sex: Female
  Weight: 106 kg

DRUGS (3)
  1. ZITHROMAX [Suspect]
     Active Substance: AZITHROMYCIN DIHYDRATE
     Indication: Eye infection toxoplasmal
     Dosage: 1 DF, 1X/DAY
     Route: 048
     Dates: start: 20250128
  2. PYRIMETHAMINE [Suspect]
     Active Substance: PYRIMETHAMINE
     Indication: Eye infection toxoplasmal
     Dosage: 1 DF, 1X/DAY
     Route: 048
     Dates: start: 20250128
  3. LEUCOVORIN [Concomitant]
     Active Substance: LEUCOVORIN\LEUCOVORIN CALCIUM
     Indication: Eye infection toxoplasmal
     Dosage: 1 DF, 1X/DAY
     Route: 048
     Dates: start: 20250128

REACTIONS (2)
  - Hepatic cytolysis [Recovering/Resolving]
  - Acute kidney injury [Recovering/Resolving]

NARRATIVE: CASE EVENT DATE: 20250211
